FAERS Safety Report 4840218-7 (Version None)
Quarter: 2005Q4

REPORT INFORMATION
  Report Type: 
  Country: None (occurrence: None)
  Receive Date: 20051129
  Receipt Date: 20051123
  Transmission Date: 20060501
  Serious: Yes (Other)
  Sender: FDA-Public Use
  Company Number: ES-MERCK-0511ESP00034

PATIENT
  Sex: Male

DRUGS (2)
  1. VIOXX [Suspect]
     Route: 048
     Dates: start: 20020601, end: 20041001
  2. ACETAMINOPHEN [Concomitant]
     Route: 048

REACTIONS (1)
  - INFARCTION [None]
